FAERS Safety Report 4515460-5 (Version None)
Quarter: 2004Q4

REPORT INFORMATION
  Report Type: 
  Country: None (occurrence: None)
  Receive Date: 20041126
  Receipt Date: 20041112
  Transmission Date: 20050328
  Serious: Yes (Other)
  Sender: FDA-Public Use
  Company Number: 2004064593

PATIENT
  Age: 53 Year
  Sex: Male
  Weight: 81.6475 kg

DRUGS (2)
  1. LIPITOR [Suspect]
     Indication: BLOOD CHOLESTEROL INCREASED
     Dosage: 20 MG (20 MG, 1 IN 1 D), ORAL
     Route: 048
     Dates: end: 20040728
  2. SUMATRIPTAN SUCCINATE [Concomitant]

REACTIONS (8)
  - BILE DUCT OBSTRUCTION [None]
  - CHOLECYSTITIS [None]
  - DERMATITIS EXFOLIATIVE [None]
  - HEPATITIS [None]
  - JAUNDICE CHOLESTATIC [None]
  - PANCREATIC CARCINOMA [None]
  - SKIN BLEEDING [None]
  - WEIGHT DECREASED [None]
